FAERS Safety Report 10466195 (Version 1)
Quarter: 2014Q3

REPORT INFORMATION
  Report Type: Spontaneous
  Country: US (occurrence: None)
  Receive Date: 20140918
  Receipt Date: 20140918
  Transmission Date: 20150326
  Serious: Yes (Death)
  Sender: FDA-Public Use
  Company Number: 2014SA124028

PATIENT
  Age: 65 Year
  Sex: Male

DRUGS (3)
  1. PREV MEDS [Concomitant]
  2. DIPHENHYDRAMINE [Suspect]
     Active Substance: DIPHENHYDRAMINE
  3. CON MEDS [Concomitant]

REACTIONS (9)
  - Respiratory depression [None]
  - Toxicity to various agents [None]
  - Depressed level of consciousness [None]
  - Tremor [None]
  - Agitation [None]
  - Delirium [None]
  - Hyperreflexia [None]
  - Coma [None]
  - Dystonia [None]
